FAERS Safety Report 21811189 (Version 1)
Quarter: 2023Q1

REPORT INFORMATION
  Report Type: Spontaneous
  Country: US (occurrence: US)
  Receive Date: 20230103
  Receipt Date: 20230103
  Transmission Date: 20230417
  Serious: Yes (Other)
  Sender: FDA-Public Use
  Company Number: US-AMGEN-USASP2022226000

PATIENT
  Age: 32 Year
  Sex: Male

DRUGS (7)
  1. FILGRASTIM [Suspect]
     Active Substance: FILGRASTIM
     Indication: Product used for unknown indication
     Dosage: UNK
     Route: 065
  2. SORAFENIB [Concomitant]
     Active Substance: SORAFENIB
  3. AZACITIDINE [Concomitant]
     Active Substance: AZACITIDINE
  4. FLUDARABINE [Concomitant]
     Active Substance: FLUDARABINE PHOSPHATE
  5. CYTARABINE [Concomitant]
     Active Substance: CYTARABINE
  6. IDARUBICIN [Concomitant]
     Active Substance: IDARUBICIN
  7. VENETOCLAX [Concomitant]
     Active Substance: VENETOCLAX

REACTIONS (1)
  - Acute myeloid leukaemia [Unknown]
